FAERS Safety Report 12756296 (Version 1)
Quarter: 2016Q3

REPORT INFORMATION
  Report Type: Spontaneous
  Country: US (occurrence: US)
  Receive Date: 20160916
  Receipt Date: 20160916
  Transmission Date: 20161109
  Serious: Yes (Hospitalization)
  Sender: FDA-Public Use
  Company Number: US-ASTRAZENECA-2016SE97283

PATIENT
  Sex: Male

DRUGS (1)
  1. BRILINTA [Suspect]
     Active Substance: TICAGRELOR
     Indication: ACUTE CORONARY SYNDROME
     Route: 048
     Dates: start: 201601

REACTIONS (5)
  - Chronic obstructive pulmonary disease [Unknown]
  - Hypotension [Unknown]
  - Nervousness [Unknown]
  - Cardiac failure congestive [Unknown]
  - Drug dose omission [Unknown]
